FAERS Safety Report 22253502 (Version 1)
Quarter: 2023Q2

REPORT INFORMATION
  Report Type: Spontaneous
  Country: US (occurrence: US)
  Receive Date: 20230426
  Receipt Date: 20230426
  Transmission Date: 20230721
  Serious: Yes (Other)
  Sender: FDA-Public Use
  Company Number: US-SUN PHARMACEUTICAL INDUSTRIES LTD-2022R1-355822

PATIENT
  Age: 37 Year
  Sex: Female

DRUGS (8)
  1. BUPRENORPHINE [Suspect]
     Active Substance: BUPRENORPHINE
     Indication: Pelvic pain
     Dosage: 1/2 TABLET TWICE DAILY
     Route: 060
  2. BUPRENORPHINE [Suspect]
     Active Substance: BUPRENORPHINE
     Dosage: 1 TABLET TWICE DAILY WITH NOON 1/2 TABLET FOR 4 DAYS, THEN 1 TABLET 3 TIMES DAILY FOR 3 DAYS
     Route: 060
  3. BUPRENORPHINE [Suspect]
     Active Substance: BUPRENORPHINE
     Dosage: 1 TABLET 3 TIMES DAILY WITH 1/2 TABLET DAILY
     Route: 060
  4. BUPRENORPHINE [Suspect]
     Active Substance: BUPRENORPHINE
     Dosage: 1 TABLET 3 TIMES DAILY WITH 1/2 TABLET TWICE DAILY
     Route: 060
  5. OXYCODONE [Suspect]
     Active Substance: OXYCODONE
     Indication: Pelvic pain
     Dosage: 5.5 TABS FOR 4 DAYS FOLLOWED BY 5 TABS FOR 3 DAYS
     Route: 065
  6. OXYCODONE [Suspect]
     Active Substance: OXYCODONE
     Dosage: 4 TABS FOR 4 DAYS FOLLOWED BY 3 TABS FOR 3 DAYS
     Route: 065
  7. OXYCODONE [Suspect]
     Active Substance: OXYCODONE
     Dosage: 2.5 TABS FOR 4 DAYS FOLLOWED BY 2 TABS FOR 3 DAYS
     Route: 065
  8. OXYCODONE [Suspect]
     Active Substance: OXYCODONE
     Dosage: 1 TAB FOR 4 DAYS
     Route: 065

REACTIONS (9)
  - Tachycardia foetal [Recovered/Resolved]
  - Exposure during pregnancy [Unknown]
  - Withdrawal syndrome [Unknown]
  - Insomnia [Recovered/Resolved]
  - Nausea [Recovered/Resolved]
  - Gestational hypertension [Recovered/Resolved]
  - Condition aggravated [Unknown]
  - Pyrexia [Recovered/Resolved]
  - Live birth [Unknown]
